FAERS Safety Report 7246732-1 (Version None)
Quarter: 2011Q1

REPORT INFORMATION
  Report Type: 
  Country: None (occurrence: None)
  Receive Date: 20110127
  Receipt Date: 20080220
  Transmission Date: 20110831
  Serious: Yes (Death)
  Sender: FDA-Public Use
  Company Number: US-BAYER-2011-006862

PATIENT
  Sex: Male

DRUGS (1)
  1. TRASYLOL,TRASYLOL [Suspect]
     Indication: CORONARY ARTERY BYPASS
     Dosage: UNK
     Dates: start: 20051201

REACTIONS (14)
  - ENTEROCOCCAL BACTERAEMIA [None]
  - INJURY [None]
  - FEAR [None]
  - STRESS [None]
  - FEAR OF DEATH [None]
  - LUNG INFILTRATION [None]
  - EMOTIONAL DISTRESS [None]
  - PAIN [None]
  - DEPRESSION [None]
  - ANHEDONIA [None]
  - RENAL FAILURE ACUTE [None]
  - UNEVALUABLE EVENT [None]
  - RENAL FAILURE [None]
  - ANXIETY [None]
